FAERS Safety Report 14011099 (Version 1)
Quarter: 2017Q3

REPORT INFORMATION
  Report Type: Spontaneous
  Country: FR (occurrence: FR)
  Receive Date: 20170926
  Receipt Date: 20170926
  Transmission Date: 20171128
  Serious: Yes (Other)
  Sender: FDA-Public Use
  Company Number: FR-ROCHE-1995541

PATIENT
  Age: 53 Year
  Sex: Female

DRUGS (18)
  1. ACICLOVIR MYLAN [Suspect]
     Active Substance: ACYCLOVIR
     Indication: PRODUCT USED FOR UNKNOWN INDICATION
     Route: 042
     Dates: start: 20170828
  2. PANTOPRAZOLE SODIUM. [Suspect]
     Active Substance: PANTOPRAZOLE SODIUM
     Indication: ABDOMINAL PAIN UPPER
     Route: 042
     Dates: start: 20170828
  3. SCOPODERM TTS [Suspect]
     Active Substance: SCOPOLAMINE
     Indication: DYSPHAGIA
     Dosage: 1MG/72 HOURS, SKIN PATCH
     Route: 062
     Dates: start: 20170828, end: 20170831
  4. LOVENOX [Suspect]
     Active Substance: ENOXAPARIN SODIUM
     Indication: PROPHYLAXIS
     Route: 058
     Dates: start: 20170831
  5. CORTANCYL [Concomitant]
     Active Substance: PREDNISONE
  6. PHOCYTAN [Concomitant]
     Active Substance: .ALPHA.-GLUCOSE-1-PHOSPHATE
     Indication: PARENTERAL NUTRITION
     Route: 065
  7. NOVORAPID [Concomitant]
     Active Substance: INSULIN ASPART
     Indication: DIABETES MELLITUS MANAGEMENT
  8. ARACYTINE [Concomitant]
     Active Substance: CYTARABINE
  9. VITALIPID [Concomitant]
     Active Substance: ERGOCALCIFEROL\PHYTONADIONE\RETINOL\TOCOPHEROL
     Indication: STARVATION
     Route: 065
  10. ENDOXAN [Concomitant]
     Active Substance: CYCLOPHOSPHAMIDE
  11. METHOTREXATE. [Concomitant]
     Active Substance: METHOTREXATE
  12. VINCRISTINE [Concomitant]
     Active Substance: VINCRISTINE
  13. DEPO-MEDROL [Concomitant]
     Active Substance: METHYLPREDNISOLONE ACETATE
  14. CEFTRIAXONE MYLAN [Concomitant]
     Active Substance: CEFTRIAXONE
  15. CYMEVAN [Suspect]
     Active Substance: GANCICLOVIR
     Indication: CYTOMEGALOVIRUS INFECTION
     Route: 042
     Dates: start: 20170829
  16. VANCOMYCINE SANDOZ [Concomitant]
     Active Substance: VANCOMYCIN
     Indication: PRODUCT USED FOR UNKNOWN INDICATION
  17. OLIMEL [Concomitant]
     Active Substance: AMINO ACIDS\DEXTROSE\SOYBEAN OIL
     Indication: STARVATION
  18. CEFEPIME [Concomitant]
     Active Substance: CEFEPIME HYDROCHLORIDE

REACTIONS (3)
  - Seizure [Recovered/Resolved]
  - Aggression [Recovered/Resolved]
  - Agitation [Recovered/Resolved]

NARRATIVE: CASE EVENT DATE: 20170901
